FAERS Safety Report 20713966 (Version 1)
Quarter: 2022Q2

REPORT INFORMATION
  Report Type: Spontaneous
  Country: US (occurrence: US)
  Receive Date: 20220415
  Receipt Date: 20220415
  Transmission Date: 20220721
  Serious: Yes (Other)
  Sender: FDA-Public Use
  Company Number: US-SANOFI-01058185

PATIENT
  Age: 79 Year
  Sex: Female

DRUGS (1)
  1. LANTUS SOLOSTAR [Suspect]
     Active Substance: INSULIN GLARGINE
     Indication: Type 2 diabetes mellitus
     Dosage: DRUG STRUCTURE DOSAGE : 16 UNITS DRUG INTERVAL DOSAGE : ONCE DAILY DRUG TREATMENT DURATION:,16 IU, Q

REACTIONS (4)
  - Cerebrovascular accident [Unknown]
  - Gait disturbance [Unknown]
  - Memory impairment [Unknown]
  - Visual impairment [Unknown]
